FAERS Safety Report 9253186 (Version 1)
Quarter: 2013Q2

REPORT INFORMATION
  Report Type: Spontaneous
  Country: BE (occurrence: BE)
  Receive Date: 20130424
  Receipt Date: 20130424
  Transmission Date: 20140414
  Serious: Yes (Hospitalization)
  Sender: FDA-Public Use
  Company Number: BE-B.I. PHARMACEUTICALS,INC./RIDGEFIELD-2013-BL-00201BL

PATIENT
  Age: 92 Year
  Sex: Male

DRUGS (5)
  1. PRADAXA [Suspect]
     Indication: ATRIAL FIBRILLATION
     Dosage: 220 MG
     Dates: end: 201301
  2. INSULIN [Concomitant]
     Indication: DIABETES MELLITUS
  3. EMCONCOR [Concomitant]
     Indication: HYPERTENSION
  4. EMCONCOR [Concomitant]
     Indication: CARDIAC FAILURE
  5. PROLOPA [Concomitant]
     Indication: PARKINSON^S DISEASE

REACTIONS (2)
  - Acute pulmonary oedema [Not Recovered/Not Resolved]
  - Renal failure [Not Recovered/Not Resolved]
